FAERS Safety Report 23494994 (Version 1)
Quarter: 2024Q1

REPORT INFORMATION
  Report Type: Spontaneous
  Country: US (occurrence: US)
  Receive Date: 20240207
  Receipt Date: 20240207
  Transmission Date: 20240409
  Serious: No
  Sender: FDA-Public Use
  Company Number: US-BRISTOL-MYERS SQUIBB COMPANY-2024-020297

PATIENT
  Age: 65 Year
  Sex: Male

DRUGS (1)
  1. REVLIMID [Suspect]
     Active Substance: LENALIDOMIDE
     Indication: Product used for unknown indication
     Route: 048

REACTIONS (5)
  - Peripheral swelling [Unknown]
  - Rhinorrhoea [Unknown]
  - Nausea [Unknown]
  - Ageusia [Unknown]
  - Weight increased [Unknown]

NARRATIVE: CASE EVENT DATE: 20231001
